FAERS Safety Report 11719653 (Version 1)
Quarter: 2015Q4

REPORT INFORMATION
  Report Type: Spontaneous
  Country: US (occurrence: None)
  Receive Date: 20151109
  Receipt Date: 20151109
  Transmission Date: 20160304
  Serious: Yes (Other)
  Sender: FDA-Public Use
  Company Number: None

PATIENT
  Age: 52 Year
  Sex: Female
  Weight: 83.92 kg

DRUGS (5)
  1. AZITHROMYCIN [Suspect]
     Active Substance: AZITHROMYCIN ANHYDROUS
     Indication: BRONCHITIS
     Dosage: 2 PILLS 1ST DAY THEN 1 PILL
     Route: 048
     Dates: start: 20151101, end: 20151103
  2. BENZONATE [Suspect]
     Active Substance: BENZONATATE
     Indication: COUGH
     Route: 048
     Dates: start: 20151101, end: 20151103
  3. BENZONATATE. [Concomitant]
     Active Substance: BENZONATATE
  4. BENADRYL [Concomitant]
     Active Substance: DIPHENHYDRAMINE HYDROCHLORIDE
  5. NAPROXEN. [Concomitant]
     Active Substance: NAPROXEN

REACTIONS (3)
  - Abdominal pain upper [None]
  - Deafness [None]
  - Diarrhoea [None]

NARRATIVE: CASE EVENT DATE: 20151103
